FAERS Safety Report 10381372 (Version 1)
Quarter: 2014Q3

REPORT INFORMATION
  Report Type: Spontaneous
  Country: US (occurrence: US)
  Receive Date: 20140813
  Receipt Date: 20140813
  Transmission Date: 20150326
  Serious: No
  Sender: FDA-Public Use
  Company Number: US-009507513-1408USA001864

PATIENT

DRUGS (1)
  1. CLARITIN [Suspect]
     Active Substance: LORATADINE
     Indication: RASH
     Dosage: UNK, UNKNOWN
     Route: 048

REACTIONS (4)
  - Pruritus [Unknown]
  - Erythema [Unknown]
  - Drug prescribing error [Unknown]
  - Rash [Unknown]
